FAERS Safety Report 12606198 (Version 1)
Quarter: 2016Q3

REPORT INFORMATION
  Report Type: Spontaneous
  Country: JP (occurrence: JP)
  Receive Date: 20160729
  Receipt Date: 20160729
  Transmission Date: 20161109
  Serious: Yes (Other)
  Sender: FDA-Public Use
  Company Number: JP-OTSUKA-2016_018112AA

PATIENT
  Age: 9 Decade
  Sex: Male

DRUGS (2)
  1. SAMSCA [Suspect]
     Active Substance: TOLVAPTAN
     Indication: CARDIAC FAILURE
     Dosage: 7.5 MG, UNK
     Route: 048
     Dates: start: 201508
  2. SAMSCA [Suspect]
     Active Substance: TOLVAPTAN
     Dosage: 15 MG, UNK
     Route: 048

REACTIONS (7)
  - Pulmonary oedema [Unknown]
  - Dyspnoea [Unknown]
  - Abdominal distension [Unknown]
  - Fall [Unknown]
  - Gait disturbance [Unknown]
  - Weight increased [Unknown]
  - Dizziness [Unknown]
